FAERS Safety Report 6965921-4 (Version None)
Quarter: 2010Q3

REPORT INFORMATION
  Report Type: 
  Country: None (occurrence: None)
  Receive Date: 20100903
  Receipt Date: 20100831
  Transmission Date: 20110219
  Serious: Yes (Death, Hospitalization, Disabling)
  Sender: FDA-Public Use
  Company Number: JP-BAYER-200911792BYL

PATIENT
  Age: 62 Year
  Sex: Male
  Weight: 60 kg

DRUGS (1)
  1. NEXAVAR [Suspect]
     Indication: RENAL CELL CARCINOMA
     Dosage: UNIT DOSE: 200 MG
     Route: 048
     Dates: start: 20081105, end: 20090319

REACTIONS (4)
  - HYPERAMYLASAEMIA [None]
  - LIPASE INCREASED [None]
  - RENAL CELL CARCINOMA [None]
  - RESPIRATORY DISORDER [None]
